FAERS Safety Report 6604049-X (Version None)
Quarter: 2010Q1

REPORT INFORMATION
  Report Type: 
  Country: None (occurrence: None)
  Receive Date: 20100226
  Receipt Date: 20090428
  Transmission Date: 20100710
  Serious: No
  Sender: FDA-Public Use
  Company Number: A0781029A

PATIENT
  Age: 57 Year
  Sex: Female

DRUGS (10)
  1. LAMICTAL CD [Suspect]
     Dosage: 300MG PER DAY
     Route: 048
     Dates: start: 20070701, end: 20090301
  2. LAMOTRIGINE [Suspect]
     Dosage: 300MG PER DAY
  3. AMBIEN [Concomitant]
  4. CYMBALTA [Concomitant]
  5. SPIRONOLACTONE [Concomitant]
  6. SYNTHROID [Concomitant]
  7. TOPROL-XL [Concomitant]
  8. PREVACID [Concomitant]
  9. PRAVACHOL [Concomitant]
  10. RESTASIS [Concomitant]

REACTIONS (4)
  - DRUG INEFFECTIVE [None]
  - GINGIVAL PAIN [None]
  - LICHEN PLANUS [None]
  - STOMATITIS [None]
